FAERS Safety Report 8889779 (Version 1)
Quarter: 2012Q4

REPORT INFORMATION
  Report Type: Spontaneous
  Country: NL (occurrence: None)
  Receive Date: 20121031
  Receipt Date: 20121031
  Transmission Date: 20130627
  Serious: Yes (Death)
  Sender: FDA-Public Use
  Company Number: NL 1992 0001

PATIENT
  Age: 21 Year
  Sex: Male

DRUGS (1)
  1. LIPIODOL ULTRA FLUIDE (ETHIODIZED OIL), UNKNOWN [Suspect]
     Indication: LYMPHANGIOGRAPH
     Route: 027
     Dates: start: 19910628, end: 19910628

REACTIONS (1)
  - Pulmonary oedema [None]
